FAERS Safety Report 23201014 (Version 2)
Quarter: 2023Q4

REPORT INFORMATION
  Report Type: Spontaneous
  Country: US (occurrence: US)
  Receive Date: 20231118
  Receipt Date: 20231118
  Transmission Date: 20240109
  Serious: No
  Sender: FDA-Public Use
  Company Number: US-TRAVERE-2023TVT00489

PATIENT
  Age: 60 Year
  Sex: Female

DRUGS (2)
  1. FILSPARI [Suspect]
     Active Substance: SPARSENTAN
     Indication: IgA nephropathy
     Dosage: 200 MG
     Route: 048
     Dates: start: 20230825
  2. FILSPARI [Suspect]
     Active Substance: SPARSENTAN
     Indication: Haematuria

REACTIONS (8)
  - Nausea [Recovering/Resolving]
  - Fatigue [Unknown]
  - Chills [Unknown]
  - Vomiting [Unknown]
  - Dizziness [Unknown]
  - Pruritus [Unknown]
  - Mental disorder [Unknown]
  - Anaemia [Unknown]

NARRATIVE: CASE EVENT DATE: 20230825
